FAERS Safety Report 10193631 (Version 1)
Quarter: 2014Q2

REPORT INFORMATION
  Report Type: Spontaneous
  Country: US (occurrence: US)
  Receive Date: 20140524
  Receipt Date: 20140524
  Transmission Date: 20141212
  Serious: No
  Sender: FDA-Public Use
  Company Number: US-SA-2014SA007786

PATIENT
  Age: 52 Year
  Sex: Male

DRUGS (8)
  1. LANTUS SOLOSTAR [Suspect]
     Indication: TYPE 2 DIABETES MELLITUS
     Dosage: TAKEN FROM: 2-3 YEARS DOSE:24 UNIT(S)
     Route: 051
  2. SOLOSTAR [Concomitant]
  3. NOVOLOG [Concomitant]
     Dosage: DOSE: 6 TO 10 UNITS
     Route: 065
  4. METFORMIN [Concomitant]
     Route: 065
  5. ALL OTHER THERAPEUTIC PRODUCTS [Concomitant]
  6. ANTIHYPERTENSIVES [Concomitant]
  7. NEXIUM [Concomitant]
  8. VITAMIN E [Concomitant]
     Route: 065

REACTIONS (4)
  - Abdominal discomfort [Not Recovered/Not Resolved]
  - Nausea [Not Recovered/Not Resolved]
  - Hyperhidrosis [Not Recovered/Not Resolved]
  - Expired product administered [Unknown]
